FAERS Safety Report 14098935 (Version 1)
Quarter: 2017Q4

REPORT INFORMATION
  Report Type: Spontaneous
  Country: MX (occurrence: MX)
  Receive Date: 20171017
  Receipt Date: 20171017
  Transmission Date: 20180321
  Serious: Yes (Other)
  Sender: FDA-Public Use
  Company Number: MX-PFIZER INC-2017442709

PATIENT
  Age: 75 Year
  Sex: Male

DRUGS (2)
  1. SUNITINIB MALATE. [Suspect]
     Active Substance: SUNITINIB MALATE
     Indication: METASTATIC RENAL CELL CARCINOMA
     Dosage: 50 MG, CYCLIC, 4/2
     Dates: start: 20131113
  2. SUNITINIB MALATE. [Suspect]
     Active Substance: SUNITINIB MALATE
     Dosage: 37.5 MG, UNK
     Dates: end: 201603

REACTIONS (9)
  - Upper limb fracture [Unknown]
  - Muscle spasms [Unknown]
  - Asthenia [Unknown]
  - Oedema [Unknown]
  - Mucosal inflammation [Unknown]
  - Back pain [Unknown]
  - Pericardial effusion [Unknown]
  - Pathological fracture [Unknown]
  - Neoplasm progression [Unknown]

NARRATIVE: CASE EVENT DATE: 20131113
